FAERS Safety Report 10897921 (Version 1)
Quarter: 2015Q1

REPORT INFORMATION
  Report Type: Spontaneous
  Country: US (occurrence: None)
  Receive Date: 20150302
  Receipt Date: 20150302
  Transmission Date: 20150721
  Serious: Yes (Disabling)
  Sender: FDA-Public Use
  Company Number: None

PATIENT
  Age: 61 Year
  Sex: Male
  Weight: 93.9 kg

DRUGS (5)
  1. CAFFEINE. [Concomitant]
     Active Substance: CAFFEINE
  2. ASA [Concomitant]
     Active Substance: ASPIRIN
  3. ATORVASTATIN CALCIUM. [Suspect]
     Active Substance: ATORVASTATIN CALCIUM
     Indication: BLOOD CHOLESTEROL INCREASED
     Dosage: 1/2 TAB 10 MG ONCE DAILY TAKEN BY MOUTH
     Route: 048
     Dates: start: 20150116, end: 20150225
  4. TIZANIDINE (TIZANIDINE) [Concomitant]
     Active Substance: TIZANIDINE
  5. BUTALBITAL [Concomitant]
     Active Substance: BUTALBITAL

REACTIONS (1)
  - Myalgia [None]

NARRATIVE: CASE EVENT DATE: 20150226
